FAERS Safety Report 25165138 (Version 1)
Quarter: 2025Q2

REPORT INFORMATION
  Report Type: Report from Study
  Country: US (occurrence: US)
  Receive Date: 20250407
  Receipt Date: 20250407
  Transmission Date: 20250716
  Serious: Yes (Death, Other)
  Sender: ACADIA PHARMACEUTICALS
  Company Number: US-ACADIA PHARMACEUTICALS INC.-ACA-2025-PIM-003656

PATIENT
  Age: 70 Year
  Sex: Male

DRUGS (13)
  1. NUPLAZID [Suspect]
     Active Substance: PIMAVANSERIN TARTRATE
     Indication: Parkinson^s disease
     Dosage: 34 MILLIGRAM, QD
     Route: 048
     Dates: start: 20220121, end: 20250309
  2. DOCUSATE SOD [Concomitant]
  3. QUETIAPINE [Concomitant]
     Active Substance: QUETIAPINE
  4. SERTRALINE [Concomitant]
     Active Substance: SERTRALINE HYDROCHLORIDE
  5. CEPHALEXIN [Concomitant]
     Active Substance: CEPHALEXIN
  6. IBUPROFEN [Concomitant]
     Active Substance: IBUPROFEN
  7. CARBIDOPA AND LEVODOPA [Concomitant]
     Active Substance: CARBIDOPA\LEVODOPA
  8. CARBIDOPA AND LEVODOPA [Concomitant]
     Active Substance: CARBIDOPA\LEVODOPA
  9. ENTACAPONE [Concomitant]
     Active Substance: ENTACAPONE
  10. LISINOPRIL [Concomitant]
     Active Substance: LISINOPRIL
  11. PRAMIPEXOLE [Concomitant]
     Active Substance: PRAMIPEXOLE
  12. VITAMINS [Concomitant]
     Active Substance: VITAMINS
  13. TAMSULOSIN [Concomitant]
     Active Substance: TAMSULOSIN

REACTIONS (1)
  - Death [Fatal]

NARRATIVE: CASE EVENT DATE: 20250309
